FAERS Safety Report 6193663-4 (Version None)
Quarter: 2009Q2

REPORT INFORMATION
  Report Type: 
  Country: None (occurrence: None)
  Receive Date: 20090518
  Receipt Date: 20090504
  Transmission Date: 20091009
  Serious: Yes (Death, Hospitalization)
  Sender: FDA-Public Use
  Company Number: GB-AVENTIS-200914921GDDC

PATIENT
  Age: 77 Year
  Sex: Male

DRUGS (8)
  1. GLIBENCLAMIDE [Suspect]
  2. METFORMIN HCL [Suspect]
     Indication: TYPE 2 DIABETES MELLITUS
  3. ERLOTINIB [Suspect]
     Route: 048
     Dates: start: 20070802
  4. REPAGLINIDE [Concomitant]
  5. DOXAZOSIN MESYLATE [Concomitant]
  6. OMEPRAZOLE [Concomitant]
  7. PREDNISONE [Concomitant]
  8. FUROSEMIDE [Concomitant]

REACTIONS (4)
  - DELIRIUM [None]
  - HEPATITIS [None]
  - LACTIC ACIDOSIS [None]
  - TACHYPNOEA [None]
